FAERS Safety Report 19969618 (Version 3)
Quarter: 2022Q1

REPORT INFORMATION
  Report Type: Report from Study
  Country: US (occurrence: US)
  Receive Date: 20211019
  Receipt Date: 20220208
  Transmission Date: 20220423
  Serious: Yes (Hospitalization)
  Sender: FDA-Public Use
  Company Number: US-PHARMACOVIGILANCE-US-KAD-21-00018

PATIENT
  Age: 65 Year
  Sex: Male
  Weight: 79 kg

DRUGS (33)
  1. REZUROCK [Suspect]
     Active Substance: BELUMOSUDIL
     Indication: Chronic graft versus host disease
     Dosage: 200 MILLIGRAM, QD
     Route: 048
     Dates: start: 20210909
  2. TYLENOL [Concomitant]
     Active Substance: ACETAMINOPHEN
     Indication: Product used for unknown indication
     Dosage: 650 MILLIGRAM, Q6H
  3. LIPITOR [Concomitant]
     Active Substance: ATORVASTATIN CALCIUM
     Indication: Hyperlipidaemia
     Dosage: 20 MILLIGRAM, QN
     Route: 048
  4. CALCIUM CARBONATE\CHOLECALCIFEROL [Concomitant]
     Active Substance: CALCIUM CARBONATE\CHOLECALCIFEROL
     Indication: Product used for unknown indication
     Dosage: 500MG/5MCG, BID
     Route: 048
  5. SARNA [CAMPHOR;MENTHOL] [Concomitant]
     Indication: Product used for unknown indication
     Dosage: 0.5/0.5 PERCENT
     Route: 061
  6. DEXTROSE [Concomitant]
     Active Substance: DEXTROSE
     Indication: Product used for unknown indication
     Dosage: 40 % ORAL GEL 15 G
     Route: 048
  7. ENOXAPARIN SODIUM [Concomitant]
     Active Substance: ENOXAPARIN SODIUM
     Indication: Deep vein thrombosis
     Dosage: 40 MILLIGRAM, QD
     Route: 058
  8. GLUCAGON G [Concomitant]
     Indication: Product used for unknown indication
     Dosage: 1 MILLIGRAM
     Route: 030
  9. LANTUS [Concomitant]
     Active Substance: INSULIN GLARGINE
     Indication: Type 2 diabetes mellitus
     Dosage: 27 UNITS, QN
     Route: 058
  10. LANTUS [Concomitant]
     Active Substance: INSULIN GLARGINE
     Dosage: 15 UNITS, QN
  11. ADMELOG [Concomitant]
     Active Substance: INSULIN LISPRO
     Indication: Type 2 diabetes mellitus
     Dosage: 2-8 UNITS, QN
     Route: 058
  12. ADMELOG [Concomitant]
     Active Substance: INSULIN LISPRO
     Dosage: 4-12 UNITS, TID
     Route: 058
  13. ADMELOG [Concomitant]
     Active Substance: INSULIN LISPRO
     Dosage: 5 UNITS, TID
  14. ADMELOG [Concomitant]
     Active Substance: INSULIN LISPRO
     Dosage: 1-4 UNITS, TID
  15. ADMELOG [Concomitant]
     Active Substance: INSULIN LISPRO
     Dosage: 1-3 UNITS, QN
  16. SYNTHROID [Concomitant]
     Active Substance: LEVOTHYROXINE SODIUM
     Indication: Type 2 diabetes mellitus
     Dosage: 75 MICROGRAM, QD
     Route: 048
  17. PROAMATINE [Concomitant]
     Active Substance: MIDODRINE HYDROCHLORIDE
     Indication: Orthostatic hypotension
     Dosage: 5 MILLIGRAM, QN
     Route: 048
  18. SINGULAIR [Concomitant]
     Active Substance: MONTELUKAST SODIUM
     Indication: Product used for unknown indication
     Dosage: 10 MILLIGRAM, QN
     Route: 048
  19. POLYVINYL ALCOHOL [Concomitant]
     Active Substance: POLYVINYL ALCOHOL
     Indication: Product used for unknown indication
     Dosage: 1.4 PERCENT, 1 DROP, Q6H
     Route: 047
  20. NOXAFIL [Concomitant]
     Active Substance: POSACONAZOLE
     Indication: Product used for unknown indication
     Dosage: 300 MILLIGRAM, QD
     Route: 048
  21. SEROQUEL [Concomitant]
     Active Substance: QUETIAPINE FUMARATE
     Indication: Depression
     Dosage: 25 MILLIGRAM, QN
     Route: 048
  22. BACTRIM DS [Concomitant]
     Active Substance: SULFAMETHOXAZOLE\TRIMETHOPRIM
     Indication: Product used for unknown indication
     Dosage: 160 MILLIGRAM, BID
     Route: 048
  23. KENALOG [Concomitant]
     Active Substance: TRIAMCINOLONE ACETONIDE
     Indication: Product used for unknown indication
     Dosage: 0.1 PERCENT, 1 APPLICATION, BID
     Route: 061
  24. DEXTROSE [Concomitant]
     Active Substance: DEXTROSE
     Indication: Product used for unknown indication
     Dosage: 25 GRAM, Q15 MINS
     Route: 042
  25. VISTARIL (HYDROXYZINE HYDROCHLORIDE) [Concomitant]
     Active Substance: HYDROXYZINE HYDROCHLORIDE
     Indication: Product used for unknown indication
     Dosage: 25 MILLIGRAM, Q8H
     Route: 048
  26. DECADRON [Concomitant]
     Active Substance: DEXAMETHASONE
     Indication: Eye pruritus
     Dosage: 0.1 % OPHTHALMIC SOLUTION 1 DROP
  27. SODIUM CHLORIDE [Concomitant]
     Active Substance: SODIUM CHLORIDE
     Indication: Product used for unknown indication
     Dosage: 0.9 % BOLUS 250 ML
  28. HEPARIN (IODISED) SODIUM [Concomitant]
     Indication: Product used for unknown indication
     Dosage: 10 UNIT/ML INJECTION 30 UNITS
  29. MINERALS\VITAMINS [Concomitant]
     Active Substance: MINERALS\VITAMINS
     Indication: Product used for unknown indication
     Dosage: UNKNOWN
  30. BUTABARBITAL\HYOSCYAMINE HYDROBROMIDE\PHENAZOPYRIDINE HYDROCHLORIDE [Concomitant]
     Active Substance: BUTABARBITAL\HYOSCYAMINE HYDROBROMIDE\PHENAZOPYRIDINE HYDROCHLORIDE
     Indication: Product used for unknown indication
     Dosage: 200 MG
  31. POSACONAZOLE [Concomitant]
     Active Substance: POSACONAZOLE
     Indication: Product used for unknown indication
     Dosage: 300 MILLIGRAM, QD
  32. ZOLEDRONIC ACID [Concomitant]
     Active Substance: ZOLEDRONIC ACID
     Indication: Product used for unknown indication
     Dosage: UNK
     Dates: start: 20210924
  33. VALTREX S [Concomitant]
     Indication: Product used for unknown indication
     Dosage: UNK
     Dates: start: 20210924

REACTIONS (10)
  - Drug hypersensitivity [Unknown]
  - Visual impairment [Unknown]
  - Disease progression [Unknown]
  - Condition aggravated [Unknown]
  - Asthenia [Unknown]
  - Pruritus [Not Recovered/Not Resolved]
  - Rash macular [Not Recovered/Not Resolved]
  - Rash papular [Unknown]
  - Skin swelling [Unknown]
  - Periorbital swelling [Unknown]

NARRATIVE: CASE EVENT DATE: 20210924
